FAERS Safety Report 6037273-8 (Version None)
Quarter: 2009Q1

REPORT INFORMATION
  Report Type: 
  Country: None (occurrence: None)
  Receive Date: 20090114
  Receipt Date: 20090112
  Transmission Date: 20090719
  Serious: Yes (Hospitalization)
  Sender: FDA-Public Use
  Company Number: B0533572A

PATIENT
  Age: 74 Year
  Sex: Female

DRUGS (9)
  1. SERETIDE [Suspect]
     Indication: ASTHMA
     Dosage: 2PUFF TWICE PER DAY
     Route: 055
     Dates: start: 20080401
  2. VENTOLIN [Suspect]
     Indication: ASTHMA
     Dosage: 100MCG AS REQUIRED
     Route: 055
  3. ATORVASTATIN CALCIUM [Suspect]
     Dosage: 20MG PER DAY
     Route: 048
  4. DILTIAZEM [Suspect]
     Dosage: 90MG TWICE PER DAY
     Route: 065
  5. ISOSORBIDE MONONITRATE [Suspect]
     Dosage: 10MG TWICE PER DAY
     Route: 048
  6. WARFARIN SODIUM [Suspect]
     Dosage: 2MG PER DAY
     Route: 048
  7. TIOTROPIUM [Suspect]
     Indication: DRUG USE FOR UNKNOWN INDICATION
     Dosage: 15MCG PER DAY
     Route: 055
  8. TEMAZEPAM [Suspect]
     Indication: SLEEP DISORDER
     Dosage: 10MG PER DAY
     Route: 048
  9. ACETAMINOPHEN [Suspect]
     Indication: PAIN
     Dosage: 500MG FOUR TIMES PER DAY
     Route: 048

REACTIONS (7)
  - CHOLELITHIASIS [None]
  - DRUG LEVEL DECREASED [None]
  - DRUG LEVEL INCREASED [None]
  - DYSPNOEA [None]
  - EPISTAXIS [None]
  - HERPES ZOSTER [None]
  - PAIN [None]
